FAERS Safety Report 20873886 (Version 1)
Quarter: 2022Q2

REPORT INFORMATION
  Report Type: Spontaneous
  Country: US (occurrence: None)
  Receive Date: 20220525
  Receipt Date: 20220525
  Transmission Date: 20220721
  Serious: No
  Sender: FDA-Public Use
  Company Number: None

PATIENT
  Age: 43 Year
  Sex: Female

DRUGS (1)
  1. DEFERASIROX [Suspect]
     Active Substance: DEFERASIROX
     Indication: Thalassaemia sickle cell
     Dosage: 180MG ONCE DAILY ORAL?
     Route: 048
     Dates: start: 202010

REACTIONS (2)
  - Vascular occlusion [None]
  - Therapy interrupted [None]

NARRATIVE: CASE EVENT DATE: 20220520
